FAERS Safety Report 8136423-7 (Version None)
Quarter: 2012Q1

REPORT INFORMATION
  Report Type: 
  Country: None (occurrence: None)
  Receive Date: 20120209
  Receipt Date: 20120202
  Transmission Date: 20120608
  Serious: Yes (Other)
  Sender: FDA-Public Use
  Company Number: 2012SP006194

PATIENT
  Age: 62 Year
  Sex: Male

DRUGS (3)
  1. PEGASYS [Suspect]
     Indication: HEPATITIS C
  2. REBETOL [Suspect]
     Indication: HEPATITIS C
  3. VICTRELIS [Suspect]
     Indication: HEPATITIS C
     Dates: start: 20111201, end: 20120101

REACTIONS (5)
  - PULMONARY OEDEMA [None]
  - COUGH [None]
  - HAEMOGLOBIN DECREASED [None]
  - RENAL FAILURE [None]
  - DIABETES MELLITUS [None]
